FAERS Safety Report 11792227 (Version 1)
Quarter: 2015Q4

REPORT INFORMATION
  Report Type: Report from Study
  Country: PR (occurrence: PR)
  Receive Date: 20151201
  Receipt Date: 20151201
  Transmission Date: 20160305
  Serious: Yes (Hospitalization)
  Sender: FDA-Public Use
  Company Number: PR-ABBVIE-15K-131-1482585-00

PATIENT
  Sex: Female
  Weight: 54.93 kg

DRUGS (1)
  1. HUMIRA [Suspect]
     Active Substance: ADALIMUMAB
     Indication: RHEUMATOID ARTHRITIS
     Route: 058
     Dates: start: 20150515, end: 20150515

REACTIONS (6)
  - Drug hypersensitivity [Recovered/Resolved]
  - Anaemia [Unknown]
  - Ulcer haemorrhage [Recovered/Resolved]
  - Mouth ulceration [Recovered/Resolved]
  - Haematemesis [Recovered/Resolved]
  - Anal ulcer haemorrhage [Recovered/Resolved]

NARRATIVE: CASE EVENT DATE: 2015
